FAERS Safety Report 6534118-4 (Version None)
Quarter: 2010Q1

REPORT INFORMATION
  Report Type: 
  Country: None (occurrence: None)
  Receive Date: 20100112
  Receipt Date: 20100107
  Transmission Date: 20100710
  Serious: Yes (Life-Threatening, Hospitalization)
  Sender: FDA-Public Use
  Company Number: DE-BAYER-200938011GPV

PATIENT
  Age: 17 Year
  Sex: Female
  Weight: 50 kg

DRUGS (1)
  1. YAZ [Suspect]
     Indication: CONTRACEPTION
     Route: 048
     Dates: start: 20090501

REACTIONS (8)
  - DEEP VEIN THROMBOSIS [None]
  - HYPERTHERMIA [None]
  - LOCAL SWELLING [None]
  - OEDEMA PERIPHERAL [None]
  - PNEUMONIA [None]
  - PULMONARY EMBOLISM [None]
  - RENAL VEIN THROMBOSIS [None]
  - VENA CAVA THROMBOSIS [None]
